FAERS Safety Report 14817408 (Version 1)
Quarter: 2018Q2

REPORT INFORMATION
  Report Type: Spontaneous
  Country: FR (occurrence: FR)
  Receive Date: 20180426
  Receipt Date: 20180426
  Transmission Date: 20180711
  Serious: Yes (Hospitalization, Other)
  Sender: FDA-Public Use
  Company Number: FR-009507513-1804FRA008045

PATIENT
  Age: 68 Year
  Sex: Male

DRUGS (1)
  1. REBETOL [Suspect]
     Active Substance: RIBAVIRIN
     Indication: HEPATITIS E
     Dosage: 600 MG MORNING AND EVENING
     Route: 048
     Dates: start: 20180411

REACTIONS (7)
  - Dysphagia [Unknown]
  - Ascites [Unknown]
  - Jaundice [Unknown]
  - Encephalopathy [Unknown]
  - Off label use [Unknown]
  - Condition aggravated [Unknown]
  - Confusional state [Unknown]

NARRATIVE: CASE EVENT DATE: 201804
